FAERS Safety Report 25310715 (Version 1)
Quarter: 2025Q2

REPORT INFORMATION
  Report Type: Spontaneous
  Country: NO (occurrence: NO)
  Receive Date: 20250514
  Receipt Date: 20250514
  Transmission Date: 20250716
  Serious: Yes (Life-Threatening, Hospitalization)
  Sender: MERCK SHARP & DOHME LLC
  Company Number: None

PATIENT
  Age: 71 Year
  Sex: Male

DRUGS (5)
  1. JANUMET [Suspect]
     Active Substance: METFORMIN HYDROCHLORIDE\SITAGLIPTIN PHOSPHATE
     Indication: Type 2 diabetes mellitus
     Dosage: DOSE DESCRIPTION : 1 DOSAGE FORM, Q12H?DAILY DOSE : 2 DOSAGE FORM?CONCENTRATION: 50/1000 MILLIGRAM
     Route: 048
  2. SIMVASTATIN [Concomitant]
     Active Substance: SIMVASTATIN
     Dosage: DOSE DESCRIPTION : 40 MILLIGRAM, QD?DAILY DOSE : 40 MILLIGRAM?CONCENTRATION: 40 MILLIGRAM
     Route: 048
  3. ATACAND [Concomitant]
     Active Substance: CANDESARTAN CILEXETIL
     Dosage: DOSE DESCRIPTION : 8 MILLIGRAM, QD?DAILY DOSE : 8 MILLIGRAM?CONCENTRATION: 8 MILLIGRAM
     Route: 048
  4. ADALAT [Concomitant]
     Active Substance: NIFEDIPINE
     Dosage: DOSE DESCRIPTION : 60 MILLIGRAM, QD?DAILY DOSE : 60 MILLIGRAM?CONCENTRATION: 60 MILLIGRAM
     Route: 048
  5. GLIPIZIDE [Suspect]
     Active Substance: GLIPIZIDE
     Dosage: DOSE DESCRIPTION : 5 MILLIGRAM, QD DAILY DOSE : 5 MILLIGRAM CONCENTRATION: 5 MILLIGRAM
     Route: 050

REACTIONS (2)
  - Hypoglycaemia [Recovered/Resolved]
  - Lactic acidosis [Recovered/Resolved]

NARRATIVE: CASE EVENT DATE: 20190823
